FAERS Safety Report 5051245-1 (Version None)
Quarter: 2006Q3

REPORT INFORMATION
  Report Type: 
  Country: None (occurrence: None)
  Receive Date: 20060714
  Receipt Date: 20060705
  Transmission Date: 20061208
  Serious: Yes (Disabling)
  Sender: FDA-Public Use
  Company Number: PHBS2006NO10004

PATIENT
  Age: 9 Year
  Sex: Male
  Weight: 29.7 kg

DRUGS (3)
  1. RITALIN [Suspect]
     Indication: ATTENTION DEFICIT/HYPERACTIVITY DISORDER
     Dosage: 35 MG/D
     Route: 048
     Dates: start: 20050701, end: 20050801
  2. LOSEC [Concomitant]
     Route: 065
  3. STRATTERA [Concomitant]
     Route: 065

REACTIONS (3)
  - DYSARTHRIA [None]
  - DYSPHEMIA [None]
  - DYSPRAXIA [None]
